FAERS Safety Report 16587445 (Version 1)
Quarter: 2019Q3

REPORT INFORMATION
  Report Type: Spontaneous
  Country: US (occurrence: US)
  Receive Date: 20190717
  Receipt Date: 20190717
  Transmission Date: 20191004
  Serious: No
  Sender: FDA-Public Use
  Company Number: US-JNJFOC-20190704968

PATIENT
  Age: 35 Year
  Sex: Female
  Weight: 123.49 kg

DRUGS (2)
  1. HYDROCORTISONE. [Concomitant]
     Active Substance: HYDROCORTISONE
     Indication: ANORECTAL DISORDER
     Route: 065
  2. USTEKINUMAB SOLUTION FOR INJECTION [Suspect]
     Active Substance: USTEKINUMAB
     Indication: PRODUCT USED FOR UNKNOWN INDICATION
     Route: 042
     Dates: start: 20190625

REACTIONS (4)
  - Erythema [Unknown]
  - Throat irritation [Unknown]
  - Feeling hot [Unknown]
  - Hot flush [Unknown]

NARRATIVE: CASE EVENT DATE: 20190625
